FAERS Safety Report 18190338 (Version 4)
Quarter: 2020Q4

REPORT INFORMATION
  Report Type: Spontaneous
  Country: US (occurrence: US)
  Receive Date: 20200824
  Receipt Date: 20201027
  Transmission Date: 20210113
  Serious: Yes (Life-Threatening, Hospitalization)
  Sender: FDA-Public Use
  Company Number: US-PFIZER INC-2020322892

PATIENT
  Age: 16 Year
  Sex: Male
  Weight: 56.7 kg

DRUGS (5)
  1. BENADRYL [Concomitant]
     Active Substance: DIPHENHYDRAMINE HYDROCHLORIDE
     Indication: ANAPHYLACTIC REACTION
  2. EPINEPHRINE. [Suspect]
     Active Substance: EPINEPHRINE
     Indication: ANAPHYLACTIC REACTION
     Dosage: UP-TITRATED UP TO 0.1 MCG/KG/MIN
     Route: 041
  3. BENADRYL [Concomitant]
     Active Substance: DIPHENHYDRAMINE HYDROCHLORIDE
     Indication: ALLERGY TO ARTHROPOD BITE
     Dosage: 50 MG
     Route: 042
  4. ASPIRIN (E.C.) [Concomitant]
     Active Substance: ASPIRIN
     Indication: MYOCARDIAL ISCHAEMIA
     Dosage: UNK
  5. EPINEPHRINE. [Suspect]
     Active Substance: EPINEPHRINE
     Indication: ALLERGY TO ARTHROPOD STING
     Dosage: 0.3 MG OF 1: 1000 EPINEPHRINE BY RAPID PUSH
     Route: 042

REACTIONS (9)
  - Pulmonary oedema [Recovered/Resolved]
  - Accidental overdose [Recovered/Resolved]
  - Cardiogenic shock [Recovered/Resolved]
  - Tachycardia [Recovered/Resolved]
  - Diastolic dysfunction [Recovered/Resolved]
  - Incorrect route of product administration [Recovered/Resolved]
  - Hypotension [Recovered/Resolved]
  - Hypoxia [Recovered/Resolved]
  - Myocardial ischaemia [Recovered/Resolved]
